FAERS Safety Report 16484327 (Version 1)
Quarter: 2019Q3

REPORT INFORMATION
  Report Type: Spontaneous
  Country: US (occurrence: US)
  Receive Date: 20190625
  Receipt Date: 20190625
  Transmission Date: 20191004
  Serious: Yes (Life-Threatening, Hospitalization)
  Sender: FDA-Public Use
  Company Number: None

PATIENT
  Age: 14 Year
  Sex: Female
  Weight: 83.6 kg

DRUGS (3)
  1. ALBUTEROL INHALER [Concomitant]
     Active Substance: ALBUTEROL
  2. SERTRALINE [Concomitant]
     Active Substance: SERTRALINE HYDROCHLORIDE
  3. COMBINATION (PROGESTERONE/ESTROGEN) ORAL CONTRACEPTION [Suspect]
     Active Substance: ESTROGENS\PROGESTERONE
     Indication: DYSMENORRHOEA
     Route: 048
     Dates: start: 20190518, end: 20190618

REACTIONS (3)
  - Pulmonary embolism [None]
  - Syncope [None]
  - Dizziness [None]

NARRATIVE: CASE EVENT DATE: 20190618
